FAERS Safety Report 8968372 (Version 1)
Quarter: 2012Q4

REPORT INFORMATION
  Report Type: 
  Country: US (occurrence: US)
  Receive Date: 20121218
  Receipt Date: 20121218
  Transmission Date: 20130627
  Serious: No
  Sender: FDA-Public Use
  Company Number: US-BRISTOL-MYERS SQUIBB COMPANY-16764003

PATIENT
  Age: 42 Year
  Sex: Female
  Weight: 86.17 kg

DRUGS (3)
  1. ABILIFY [Suspect]
     Indication: MOOD SWINGS
     Dosage: 2 months ago
     Dates: start: 20120411
  2. CYMBALTA [Suspect]
     Indication: PAIN
  3. CYMBALTA [Suspect]
     Indication: MOOD SWINGS

REACTIONS (3)
  - Paraesthesia [Not Recovered/Not Resolved]
  - Insomnia [Unknown]
  - Anxiety [Unknown]
